FAERS Safety Report 5663780-3 (Version None)
Quarter: 2008Q1

REPORT INFORMATION
  Report Type: 
  Country: None (occurrence: None)
  Receive Date: 20080311
  Receipt Date: 20080304
  Transmission Date: 20080703
  Serious: Yes (Other)
  Sender: FDA-Public Use
  Company Number: 20080047 /

PATIENT
  Sex: Female

DRUGS (2)
  1. METHYLENE BLUE INJECTION 1% [Suspect]
     Indication: LYMPHADENOPATHY
     Dosage: 5 CC SUBCUTANEOUS
     Route: 058
     Dates: start: 20080211, end: 20080211
  2. CONCOMITANT MEDICATIONS UNKNOWN UNK / UNK [Concomitant]

REACTIONS (7)
  - BLISTER [None]
  - CULTURE WOUND POSITIVE [None]
  - NECROSIS [None]
  - PAIN [None]
  - SOFT TISSUE INFECTION [None]
  - STAPHYLOCOCCAL INFECTION [None]
  - WOUND INFECTION PSEUDOMONAS [None]
